FAERS Safety Report 6501718-7 (Version None)
Quarter: 2009Q4

REPORT INFORMATION
  Report Type: 
  Country: None (occurrence: None)
  Receive Date: 20091208
  Receipt Date: 20091124
  Transmission Date: 20100525
  Serious: Yes (Other)
  Sender: FDA-Public Use
  Company Number: B0610669A

PATIENT
  Age: 47 Year
  Sex: Male

DRUGS (4)
  1. ABACAVIR SULFATE [Suspect]
     Indication: HIV INFECTION
  2. LAMIVUDINE [Suspect]
     Indication: HIV INFECTION
  3. ZIDOVUDINE [Suspect]
     Indication: HIV INFECTION
  4. NEVIRAPINE [Suspect]
     Indication: HIV INFECTION

REACTIONS (10)
  - ANGIOPATHY [None]
  - ASTROCYTOMA [None]
  - CEREBRAL HAEMORRHAGE [None]
  - ENCEPHALITIS [None]
  - IMMUNE RECONSTITUTION SYNDROME [None]
  - LYMPHOMA [None]
  - MUSCULAR WEAKNESS [None]
  - NEUROLOGICAL SYMPTOM [None]
  - OLIGODENDROGLIOMA [None]
  - PARAESTHESIA [None]
